FAERS Safety Report 12272691 (Version 1)
Quarter: 2016Q2

REPORT INFORMATION
  Report Type: Report from Study
  Country: DE (occurrence: KR)
  Receive Date: 20160415
  Receipt Date: 20160415
  Transmission Date: 20160815
  Serious: Yes (Death, Life-Threatening, Hospitalization)
  Sender: FDA-Public Use
  Company Number: DE-ACTELION-A-US2016-134694

PATIENT
  Age: 63 Year
  Sex: Female

DRUGS (1)
  1. VENTAVIS [Suspect]
     Active Substance: ILOPROST
     Indication: PULMONARY ARTERIAL HYPERTENSION
     Dosage: UNK
     Route: 055
     Dates: start: 20151009, end: 201603

REACTIONS (20)
  - Dizziness [Recovering/Resolving]
  - Productive cough [Not Recovered/Not Resolved]
  - Diarrhoea [Not Recovered/Not Resolved]
  - Delirium [Recovered/Resolved]
  - Pneumonia [Not Recovered/Not Resolved]
  - Inflammation [Not Recovered/Not Resolved]
  - Sputum increased [Not Recovered/Not Resolved]
  - Pulmonary oedema [Recovering/Resolving]
  - Nasopharyngitis [Not Recovered/Not Resolved]
  - Vomiting [Not Recovered/Not Resolved]
  - Quadriplegia [Recovered/Resolved]
  - Obstructive airways disorder [Recovering/Resolving]
  - Dyspnoea [Unknown]
  - Urine output decreased [Recovered/Resolved]
  - Sudden death [Fatal]
  - Oxygen saturation decreased [Recovered/Resolved]
  - Rib fracture [Not Recovered/Not Resolved]
  - Pulmonary oedema [Unknown]
  - Cyanosis [Unknown]
  - Cardiac arrest [Not Recovered/Not Resolved]

NARRATIVE: CASE EVENT DATE: 201510
